APPROVED DRUG PRODUCT: FLUCYTOSINE
Active Ingredient: FLUCYTOSINE
Strength: 500MG
Dosage Form/Route: CAPSULE;ORAL
Application: A206550 | Product #002
Applicant: HIKMA PHARMACEUTICALS USA INC
Approved: Oct 17, 2017 | RLD: No | RS: No | Type: DISCN